FAERS Safety Report 7682475 (Version 9)
Quarter: 2013Q1

REPORT INFORMATION
  Report Type: Report from Study
  Country: US (occurrence: US)
  Receive Date: 20101124
  Receipt Date: 20130102
  Transmission Date: 20140127
  Serious: Yes (Life-Threatening, Hospitalization, Disabling, Other)
  Sender: FDA-Public Use
  Company Number: PHHO2010US16310

PATIENT
  Age: 15 Year
  Sex: Female
  Weight: 80 kg

DRUGS (18)
  1. ACZ885 [Suspect]
     Indication: JUVENILE IDIOPATHIC ARTHRITIS
     Dosage: UNK
     Dates: end: 20101027
  2. CYCLOSPORIN [Suspect]
     Indication: HISTIOCYTOSIS HAEMATOPHAGIC
     Dosage: UNK
     Dates: start: 20101027
  3. NO TREATMENT RECEIVED [Suspect]
     Indication: JUVENILE IDIOPATHIC ARTHRITIS
     Dosage: NO TREATMENT
  4. SOLU-CORTEF [Suspect]
  5. DEXAMETHASONE [Suspect]
  6. VP-16 [Suspect]
  7. STEROIDS NOS [Suspect]
  8. RANITIDINE [Concomitant]
  9. MULTIVITAMINS [Concomitant]
  10. CALTRATE WITH VITAMIN D [Concomitant]
  11. ZYRTEC [Concomitant]
  12. PREDNISONE [Concomitant]
  13. MOTRIN [Concomitant]
  14. ETOPOSIDE [Concomitant]
  15. CALCIUM CHANNEL BLOCKERS [Concomitant]
  16. DIURETICS [Concomitant]
  17. AMPHOTERICIN B [Concomitant]
  18. VORICONAZOLE [Concomitant]

REACTIONS (44)
  - Histiocytosis haematophagic [Not Recovered/Not Resolved]
  - Hypotension [Recovered/Resolved]
  - Pyrexia [Recovering/Resolving]
  - Thrombocytopenia [Not Recovered/Not Resolved]
  - Liver function test abnormal [Recovering/Resolving]
  - Mental status changes [Not Recovered/Not Resolved]
  - Anaemia [Not Recovered/Not Resolved]
  - Ventricular extrasystoles [Unknown]
  - Cardiomegaly [Unknown]
  - Hepatosplenomegaly [Not Recovered/Not Resolved]
  - Pancytopenia [Not Recovered/Not Resolved]
  - Leukopenia [Not Recovered/Not Resolved]
  - Hypophagia [Unknown]
  - Left atrial dilatation [Not Recovered/Not Resolved]
  - Drug ineffective [Not Recovered/Not Resolved]
  - Condition aggravated [Not Recovered/Not Resolved]
  - Vomiting [Not Recovered/Not Resolved]
  - Dehydration [Unknown]
  - Pulmonary oedema [Not Recovered/Not Resolved]
  - Tachycardia [Not Recovered/Not Resolved]
  - Lung infiltration [Unknown]
  - Pleural effusion [Unknown]
  - Upper respiratory tract infection [Unknown]
  - Upper respiratory tract congestion [Unknown]
  - Breath sounds abnormal [Unknown]
  - Cough [Not Recovered/Not Resolved]
  - Nausea [Not Recovered/Not Resolved]
  - Klebsiella infection [Unknown]
  - Myalgia [Unknown]
  - Epstein-Barr virus infection [Unknown]
  - Blood glucose increased [Not Recovered/Not Resolved]
  - Diarrhoea [Unknown]
  - Abdominal pain [Recovering/Resolving]
  - Posterior reversible encephalopathy syndrome [Recovered/Resolved]
  - Blood pressure systolic increased [Recovered/Resolved]
  - Agitation [Recovered/Resolved]
  - Convulsion [Recovered/Resolved]
  - Disorientation [Recovered/Resolved]
  - Delirium [Recovered/Resolved]
  - Respiratory failure [Not Recovered/Not Resolved]
  - Respiratory distress [Recovering/Resolving]
  - Fungal infection [Recovering/Resolving]
  - Lymphadenopathy mediastinal [Recovering/Resolving]
  - Staphylococcal infection [Unknown]
